FAERS Safety Report 10758567 (Version 1)
Quarter: 2015Q1

REPORT INFORMATION
  Report Type: Spontaneous
  Country: US (occurrence: None)
  Receive Date: 20150123
  Receipt Date: 20150123
  Transmission Date: 20150721
  Serious: No
  Sender: FDA-Public Use
  Company Number: 2014TUS008618

PATIENT
  Age: 61 Year
  Sex: Female
  Weight: 78 kg

DRUGS (15)
  1. CALCIUM PLUS VITAMIN D (CALCIUM, COLECALCIFEROL) [Concomitant]
  2. VITAMIN B 12 (BITAMIN B NOS) [Concomitant]
  3. FEXOFENADINE [Concomitant]
     Active Substance: FEXOFENADINE\FEXOFENADINE HYDROCHLORIDE
  4. PROCRIT/00909301/ (ERYTHROPOIETIN) [Concomitant]
  5. ASPIRIN (ACETYLSALICYLIC ACID) [Concomitant]
     Active Substance: ASPIRIN
  6. SIMVASTATIN. [Concomitant]
     Active Substance: SIMVASTATIN
  7. MAGNESIUM OXIDE. [Concomitant]
     Active Substance: MAGNESIUM OXIDE
  8. LIALDA (MESALAZINE) [Concomitant]
  9. METROPROLOL [Concomitant]
     Active Substance: METOPROLOL
  10. FLUTICASONE PROPIONATE. [Concomitant]
     Active Substance: FLUTICASONE PROPIONATE
  11. SINGULAIR [Concomitant]
     Active Substance: MONTELUKAST SODIUM
  12. ADVAIR DISKUS (FLUTICASONE PROPIONATE, SALMETEROL XINAFOATE) [Concomitant]
  13. ENTYVIO [Suspect]
     Active Substance: VEDOLIZUMAB
     Indication: CROHN^S DISEASE
     Dosage: 1 DOSE, INTRAVENOUS
     Route: 042
     Dates: start: 20140626, end: 20140626
  14. PANTOPRAZOLE [Concomitant]
     Active Substance: PANTOPRAZOLE SODIUM
  15. VITAMIN D/00107901/ (ERGOCALCIFEROL) [Concomitant]

REACTIONS (2)
  - Erythema [None]
  - Alopecia [None]

NARRATIVE: CASE EVENT DATE: 201407
